FAERS Safety Report 9365274 (Version 1)
Quarter: 2013Q2

REPORT INFORMATION
  Report Type: Report from Study
  Country: CL (occurrence: CL)
  Receive Date: 20130625
  Receipt Date: 20130625
  Transmission Date: 20140414
  Serious: Yes (Other)
  Sender: FDA-Public Use
  Company Number: CL-ROCHE-1240109

PATIENT
  Age: 52 Year
  Sex: Female
  Weight: 101 kg

DRUGS (4)
  1. XELODA [Suspect]
     Indication: BREAST CANCER
     Route: 048
     Dates: start: 20130326
  2. LAPATINIB [Suspect]
     Indication: BREAST CANCER
     Route: 048
     Dates: start: 20130326
  3. LOSARTAN [Concomitant]
     Indication: HYPERTENSION
     Route: 048
     Dates: start: 2009
  4. LEVOTHYROXINE [Concomitant]
     Dosage: FOR THYROID NODULE SURGERY
     Route: 048
     Dates: start: 2008

REACTIONS (1)
  - Liver disorder [Not Recovered/Not Resolved]
